FAERS Safety Report 25847195 (Version 1)
Quarter: 2025Q3

REPORT INFORMATION
  Report Type: Spontaneous
  Country: US (occurrence: US)
  Receive Date: 20250925
  Receipt Date: 20250925
  Transmission Date: 20251020
  Serious: Yes (Other)
  Sender: MYLAN
  Company Number: US-MYLANLABS-2025M1080686

PATIENT
  Age: 70 Year
  Sex: Male

DRUGS (13)
  1. DIFLUPREDNATE OPHTHALMIC EMULSION [Suspect]
     Active Substance: DIFLUPREDNATE
     Indication: Uveitis
  2. DIFLUPREDNATE OPHTHALMIC EMULSION [Suspect]
     Active Substance: DIFLUPREDNATE
     Indication: Macular oedema
  3. PREDNISONE [Suspect]
     Active Substance: PREDNISONE
     Indication: Macular oedema
  4. INTRON A [Concomitant]
     Active Substance: INTERFERON ALFA-2B
     Indication: Macular oedema
     Dosage: 1 MIU/ML EYE DROPS SOLUTION QID IN LEFT EYE QID,DROPS
  5. PEGINTERFERON ALFA-2A [Concomitant]
     Active Substance: PEGINTERFERON ALFA-2A
     Indication: Macular oedema
     Dosage: 180 MICROGRAM, QW
  6. PEGINTERFERON ALFA-2A [Concomitant]
     Active Substance: PEGINTERFERON ALFA-2A
     Indication: Cystoid macular oedema
     Dosage: 180 MICROGRAM, QW
  7. PEGINTERFERON ALFA-2A [Concomitant]
     Active Substance: PEGINTERFERON ALFA-2A
  8. STERILE WATER [Concomitant]
     Active Substance: WATER
     Indication: Vehicle solution use
  9. CARBOXYMETHYLCELLULOSE [Concomitant]
     Active Substance: CARBOXYMETHYLCELLULOSE
     Indication: Vehicle solution use
  10. DORZOLAMIDE HYDROCHLORIDE [Concomitant]
     Active Substance: DORZOLAMIDE HYDROCHLORIDE
     Indication: Ocular hypertension
  11. TIMOLOL MALEATE [Concomitant]
     Active Substance: TIMOLOL MALEATE
     Indication: Ocular hypertension
     Dosage: UNK, BID
  12. BRIMONIDINE TARTRATE [Concomitant]
     Active Substance: BRIMONIDINE TARTRATE
     Indication: Ocular hypertension
     Dosage: UNK, TID, THRICE DAILY
  13. ERYTHROMYCIN [Concomitant]
     Active Substance: ERYTHROMYCIN
     Indication: Skin irritation

REACTIONS (2)
  - Ocular hypertension [Unknown]
  - Mood altered [Unknown]
